FAERS Safety Report 24549616 (Version 1)
Quarter: 2024Q4

REPORT INFORMATION
  Report Type: Spontaneous
  Country: GB (occurrence: GB)
  Receive Date: 20241025
  Receipt Date: 20241025
  Transmission Date: 20250115
  Serious: Yes (Hospitalization, Other)
  Sender: MYLAN
  Company Number: None

PATIENT
  Sex: Female

DRUGS (1)
  1. DOXYCYCLINE [Suspect]
     Active Substance: DOXYCYCLINE
     Indication: Lyme disease
     Dosage: UNK
     Route: 065

REACTIONS (4)
  - Gastrooesophageal reflux disease [Unknown]
  - Oesophagitis [Unknown]
  - Oesophageal ulcer [Recovering/Resolving]
  - Chest pain [Unknown]
